FAERS Safety Report 24800762 (Version 2)
Quarter: 2025Q1

REPORT INFORMATION
  Report Type: Report from Study
  Country: CA (occurrence: CA)
  Receive Date: 20250102
  Receipt Date: 20250127
  Transmission Date: 20250409
  Serious: Yes (Hospitalization)
  Sender: NOVARTIS
  Company Number: CA-002147023-NVSC2024CA112519

PATIENT
  Age: 82 Year
  Sex: Female

DRUGS (3)
  1. COSENTYX [Suspect]
     Active Substance: SECUKINUMAB
     Indication: Psoriasis
     Dosage: 300 MG, QMO
     Route: 058
     Dates: start: 20231123
  2. COSENTYX [Suspect]
     Active Substance: SECUKINUMAB
     Route: 058
     Dates: start: 20240923
  3. COSENTYX [Suspect]
     Active Substance: SECUKINUMAB
     Route: 058
     Dates: start: 20240927

REACTIONS (20)
  - Abscess [Unknown]
  - Incoherent [Unknown]
  - Confusional state [Unknown]
  - Memory impairment [Unknown]
  - Osteoporosis [Unknown]
  - Viral infection [Recovering/Resolving]
  - Oropharyngeal pain [Recovering/Resolving]
  - Fatigue [Recovering/Resolving]
  - Diarrhoea [Recovering/Resolving]
  - Gastrointestinal viral infection [Unknown]
  - Rib fracture [Unknown]
  - Tooth fracture [Unknown]
  - Tooth abscess [Recovering/Resolving]
  - Hypoaesthesia [Unknown]
  - Fall [Unknown]
  - Dry skin [Unknown]
  - Concussion [Unknown]
  - Thyroid hormones decreased [Unknown]
  - Psoriasis [Unknown]
  - Disease recurrence [Unknown]

NARRATIVE: CASE EVENT DATE: 20240101
